FAERS Safety Report 9786897 (Version 3)
Quarter: 2014Q1

REPORT INFORMATION
  Report Type: Not Available
  Country: US (occurrence: US)
  Receive Date: 20131227
  Receipt Date: 20140107
  Transmission Date: 20141002
  Serious: Yes (Hospitalization, Other)
  Sender: FDA-Public Use
  Company Number: US-ONYX-2013-1943

PATIENT
  Age: 67 Year
  Sex: Female

DRUGS (15)
  1. KYPROLIS [Suspect]
     Indication: PLASMA CELL MYELOMA
     Route: 042
     Dates: start: 20131030
  2. KYPROLIS [Suspect]
     Route: 042
     Dates: start: 20131126
  3. KYPROLIS [Suspect]
     Route: 042
     Dates: start: 20131211
  4. ERYTHROPOETIN [Concomitant]
     Indication: PRODUCT USED FOR UNKNOWN INDICATION
  5. DEXAMETHASONE [Concomitant]
     Indication: PREMEDICATION
     Route: 042
  6. DEXAMETHASONE [Concomitant]
     Route: 048
  7. ESTROGEN [Concomitant]
     Indication: POSTMENOPAUSE
  8. ARANESP [Concomitant]
     Indication: RED BLOOD CELL COUNT DECREASED
  9. SYNTHROID [Concomitant]
     Indication: THYROID DISORDER
  10. ALLOPURINOL [Concomitant]
     Indication: PROPHYLAXIS
     Dates: start: 20131023
  11. ACYCLOVIR [Concomitant]
     Indication: PROPHYLAXIS
  12. ZOMETA [Concomitant]
     Indication: PROPHYLAXIS
  13. DECADRON [Concomitant]
     Indication: PRODUCT USED FOR UNKNOWN INDICATION
  14. EMLA CREAM [Concomitant]
     Indication: CENTRAL VENOUS CATHETERISATION
  15. ATIVAN [Concomitant]
     Indication: PRODUCT USED FOR UNKNOWN INDICATION

REACTIONS (4)
  - Hypertensive crisis [Recovered/Resolved]
  - Retinal vein occlusion [Recovering/Resolving]
  - Tremor [Unknown]
  - Insomnia [Unknown]
